FAERS Safety Report 6318287-7 (Version None)
Quarter: 2009Q3

REPORT INFORMATION
  Report Type: 
  Country: None (occurrence: None)
  Receive Date: 20090821
  Receipt Date: 20090813
  Transmission Date: 20100115
  Serious: Yes (Hospitalization, Other)
  Sender: FDA-Public Use
  Company Number: US-AVENTIS-200915015US

PATIENT
  Age: 79 Year
  Sex: Female
  Weight: 54 kg

DRUGS (9)
  1. LANTUS [Suspect]
     Indication: TYPE 2 DIABETES MELLITUS
     Route: 058
  2. OPTICLIK (INSULIN INJECTION PEN) [Suspect]
     Indication: TYPE 2 DIABETES MELLITUS
     Dates: start: 20060101
  3. METFORMIN HCL [Concomitant]
     Dosage: DOSE: UNK
  4. DIOVANE [Concomitant]
     Dosage: DOSE: UNK
  5. GLIMEPIRIDE [Concomitant]
     Dosage: DOSE: UNK
  6. PAROCETAN [Concomitant]
     Dosage: DOSE: UNK
  7. LEVETIRACETAM [Concomitant]
     Dosage: DOSE: UNK
  8. METOPROLOL TARTRATE [Concomitant]
     Dosage: DOSE: UNK
  9. ENALAPRIL MALEATE [Concomitant]
     Dosage: DOSE: UNK

REACTIONS (3)
  - BLOOD GLUCOSE DECREASED [None]
  - CONVULSION [None]
  - LOSS OF CONSCIOUSNESS [None]
